FAERS Safety Report 13329878 (Version 10)
Quarter: 2018Q3

REPORT INFORMATION
  Report Type: Report from Study
  Country: None (occurrence: US)
  Receive Date: 20170313
  Receipt Date: 20180927
  Transmission Date: 20181010
  Serious: Yes (Hospitalization, Other)
  Sender: FDA-Public Use
  Company Number: US-ABBVIE-16K-163-1790483-00

PATIENT
  Age: 60 Year
  Sex: Female
  Weight: 77.18 kg

DRUGS (4)
  1. PERCOCET [Suspect]
     Active Substance: ACETAMINOPHEN\OXYCODONE HYDROCHLORIDE
     Indication: PROCEDURAL PAIN
     Route: 065
  2. HUMIRA [Suspect]
     Active Substance: ADALIMUMAB
     Route: 058
     Dates: start: 201710
  3. HUMIRA [Suspect]
     Active Substance: ADALIMUMAB
     Indication: CROHN^S DISEASE
     Route: 058
     Dates: start: 20161125, end: 201708
  4. HUMIRA [Suspect]
     Active Substance: ADALIMUMAB
     Indication: RHEUMATOID ARTHRITIS
     Route: 058
     Dates: start: 201409, end: 201611

REACTIONS (18)
  - Reduced facial expression [Recovered/Resolved]
  - Tooth fracture [Recovered/Resolved]
  - Abdominal discomfort [Recovered/Resolved]
  - Rheumatoid arthritis [Recovered/Resolved]
  - Impaired healing [Recovering/Resolving]
  - Lower respiratory tract infection [Not Recovered/Not Resolved]
  - Stress [Unknown]
  - Osteoarthritis [Recovered/Resolved]
  - Herpes zoster [Recovered/Resolved]
  - Laceration [Recovering/Resolving]
  - Postoperative adhesion [Recovered/Resolved]
  - Osteoarthritis [Recovered/Resolved]
  - Condition aggravated [Recovered/Resolved]
  - Sinus congestion [Not Recovered/Not Resolved]
  - Impaired healing [Recovered/Resolved]
  - Post procedural complication [Recovered/Resolved]
  - Injury [Unknown]
  - Rheumatoid arthritis [Recovered/Resolved]

NARRATIVE: CASE EVENT DATE: 201611
